FAERS Safety Report 19212006 (Version 2)
Quarter: 2021Q3

REPORT INFORMATION
  Report Type: Spontaneous
  Country: US (occurrence: US)
  Receive Date: 20210504
  Receipt Date: 20210702
  Transmission Date: 20211014
  Serious: No
  Sender: FDA-Public Use
  Company Number: US-BAYER-2021-135132

PATIENT
  Age: 4 Decade
  Sex: Female

DRUGS (1)
  1. KYLEENA [Suspect]
     Active Substance: LEVONORGESTREL
     Indication: CONTRACEPTION
     Dosage: 17.5?G PER DAY, CONTINUOUSLY
     Route: 015
     Dates: start: 20191017, end: 20191120

REACTIONS (5)
  - Rash macular [None]
  - Pruritus [None]
  - Irritability [None]
  - Skin burning sensation [None]
  - Mood altered [None]

NARRATIVE: CASE EVENT DATE: 2019
